FAERS Safety Report 8825535 (Version 2)
Quarter: 2013Q3

REPORT INFORMATION
  Report Type: Spontaneous
  Country: US (occurrence: US)
  Receive Date: 20121004
  Receipt Date: 20130910
  Transmission Date: 20140515
  Serious: Yes (Hospitalization, Other)
  Sender: FDA-Public Use
  Company Number: US-GENZYME-POMP-1002459

PATIENT
  Sex: Male

DRUGS (1)
  1. LUMIZYME [Suspect]
     Indication: GLYCOGEN STORAGE DISEASE TYPE II
     Dosage: 1750 MG, Q2W
     Route: 042

REACTIONS (4)
  - Cystitis [Recovered/Resolved]
  - Infection [Recovered/Resolved]
  - Device occlusion [Unknown]
  - Hypotension [Unknown]
